FAERS Safety Report 5067609-6 (Version None)
Quarter: 2006Q3

REPORT INFORMATION
  Report Type: 
  Country: None (occurrence: None)
  Receive Date: 20060717
  Receipt Date: 20060328
  Transmission Date: 20061208
  Serious: Yes (Other)
  Sender: FDA-Public Use
  Company Number: 2006044500

PATIENT
  Age: 84 Year
  Sex: Female

DRUGS (10)
  1. MACUGEN [Suspect]
     Indication: ILL-DEFINED DISORDER
     Dosage: (0.3 MG)
  2. WARFARIN SODIUM [Concomitant]
  3. PREDNISONE TAB [Concomitant]
  4. FUROSEMIDE [Concomitant]
  5. ISOSORBIDE (ISOSORBIDE) [Concomitant]
  6. LEXAPRO [Concomitant]
  7. LISINOPRIL [Concomitant]
  8. COREG [Concomitant]
  9. ASPIRIN [Concomitant]
  10. LIPITOR [Concomitant]

REACTIONS (1)
  - HYPERSENSITIVITY [None]
